FAERS Safety Report 4540349-5 (Version None)
Quarter: 2004Q4

REPORT INFORMATION
  Report Type: 
  Country: None (occurrence: None)
  Receive Date: 20041228
  Receipt Date: 20041228
  Transmission Date: 20050328
  Serious: Yes (Other)
  Sender: FDA-Public Use
  Company Number: None

PATIENT
  Age: 63 Year
  Sex: Female
  Weight: 103.8737 kg

DRUGS (13)
  1. INVANZ [Suspect]
     Indication: ABSCESS LIMB
     Dosage: 1 GM Q 24 H IV
     Route: 042
     Dates: start: 20041202, end: 20041219
  2. INVANZ [Suspect]
     Indication: CELLULITIS
     Dosage: 1 GM Q 24 H IV
     Route: 042
     Dates: start: 20041202, end: 20041219
  3. ASPIRIN [Concomitant]
  4. ATENOLOL [Concomitant]
  5. PLAVIX [Concomitant]
  6. ALTACE [Concomitant]
  7. PROTONIX [Concomitant]
  8. CELEBREX [Concomitant]
  9. DEMODEX [Concomitant]
  10. HYOSCYAMINE [Concomitant]
  11. ARTONE [Concomitant]
  12. LONTUS [Concomitant]
  13. BENADRYL [Concomitant]

REACTIONS (2)
  - DRY SKIN [None]
  - RASH [None]
